FAERS Safety Report 14006990 (Version 1)
Quarter: 2017Q3

REPORT INFORMATION
  Report Type: Spontaneous
  Country: US (occurrence: US)
  Receive Date: 20170922
  Receipt Date: 20170922
  Transmission Date: 20171128
  Serious: Yes (Disabling, Other)
  Sender: FDA-Public Use
  Company Number: None

PATIENT
  Age: 81 Year
  Sex: Male
  Weight: 72 kg

DRUGS (11)
  1. HORSE CHESTNUT [Suspect]
     Active Substance: HORSE CHESTNUT
     Indication: VARICOSE VEIN
     Dosage: ?          QUANTITY:1 CAPSULE(S);?
     Route: 048
     Dates: start: 20170510, end: 20170914
  2. MULTIVITAMINS [Concomitant]
     Active Substance: VITAMINS
  3. ALBUTEROL INHALER [Concomitant]
     Active Substance: ALBUTEROL
  4. FINESTERIDE [Concomitant]
     Active Substance: FINASTERIDE
  5. ADVAIR HFA [Concomitant]
     Active Substance: FLUTICASONE PROPIONATE\SALMETEROL XINAFOATE
  6. TURMERIC WITH BLACK PEPPER [Concomitant]
  7. SPIRIVA [Concomitant]
     Active Substance: TIOTROPIUM BROMIDE MONOHYDRATE
  8. MYRBETRIQ [Suspect]
     Active Substance: MIRABEGRON
     Indication: BLADDER DISORDER
     Dosage: ?          QUANTITY:30 CAPSULE(S);?
     Route: 048
     Dates: start: 20170813, end: 20170914
  9. ALBUTEROL. [Concomitant]
     Active Substance: ALBUTEROL
  10. VIA D [Concomitant]
  11. ACYCLOVIR. [Concomitant]
     Active Substance: ACYCLOVIR

REACTIONS (2)
  - Haematuria [None]
  - Bladder obstruction [None]

NARRATIVE: CASE EVENT DATE: 20170816
